FAERS Safety Report 6951173-8 (Version None)
Quarter: 2010Q3

REPORT INFORMATION
  Report Type: 
  Country: None (occurrence: None)
  Receive Date: 20100828
  Receipt Date: 20100312
  Transmission Date: 20110219
  Serious: No
  Sender: FDA-Public Use
  Company Number: US-ABBOTT-10P-163-0632420-00

PATIENT
  Sex: Male
  Weight: 74.91 kg

DRUGS (2)
  1. NIASPAN [Suspect]
     Indication: BLOOD TRIGLYCERIDES INCREASED
     Dates: start: 20090801, end: 20100301
  2. TRICOR [Suspect]
     Indication: BLOOD TRIGLYCERIDES INCREASED
     Dates: start: 20090801, end: 20100301

REACTIONS (3)
  - HEPATIC PAIN [None]
  - HYPOAESTHESIA [None]
  - INCORRECT DRUG ADMINISTRATION DURATION [None]
